FAERS Safety Report 9817571 (Version 1)
Quarter: 2014Q1

REPORT INFORMATION
  Report Type: Spontaneous
  Country: CA (occurrence: CA)
  Receive Date: 20140115
  Receipt Date: 20140115
  Transmission Date: 20141002
  Serious: Yes (Other)
  Sender: FDA-Public Use
  Company Number: CA-ASTRAZENECA-2014SE01184

PATIENT
  Age: 74 Year
  Sex: Male
  Weight: 177 kg

DRUGS (7)
  1. CRESTOR [Suspect]
     Route: 048
  2. ASA [Concomitant]
  3. BISOPROLOL [Concomitant]
  4. FENTANYL [Concomitant]
  5. FUROSEMIDE [Concomitant]
  6. OXYIR [Concomitant]
  7. RAMIPRIL [Concomitant]

REACTIONS (2)
  - Serum ferritin increased [Recovered/Resolved]
  - Reaction to drug excipients [Recovered/Resolved]
